FAERS Safety Report 14587134 (Version 1)
Quarter: 2018Q1

REPORT INFORMATION
  Report Type: Spontaneous
  Country: US (occurrence: US)
  Receive Date: 20180228
  Receipt Date: 20180228
  Transmission Date: 20180509
  Serious: No
  Sender: FDA-Public Use
  Company Number: None

PATIENT
  Age: 62 Year
  Sex: Male

DRUGS (1)
  1. AFINITOR [Suspect]
     Active Substance: EVEROLIMUS

REACTIONS (3)
  - Skin ulcer [None]
  - Haematospermia [None]
  - Stomatitis [None]

NARRATIVE: CASE EVENT DATE: 20180220
